FAERS Safety Report 4303010-8 (Version None)
Quarter: 2004Q1

REPORT INFORMATION
  Report Type: 
  Country: None (occurrence: None)
  Receive Date: 20040224
  Receipt Date: 20040130
  Transmission Date: 20041129
  Serious: Yes (Other)
  Sender: FDA-Public Use
  Company Number: DE-GLAXOSMITHKLINE-D0043010A

PATIENT
  Sex: Female
  Weight: 60 kg

DRUGS (2)
  1. ZYBAN [Suspect]
     Dosage: 150MG FIVE TIMES PER DAY
     Route: 048
     Dates: start: 20040129
  2. ALCOHOL [Suspect]
     Route: 048

REACTIONS (2)
  - ALCOHOL USE [None]
  - SUICIDE ATTEMPT [None]
